FAERS Safety Report 5708906-8 (Version None)
Quarter: 2008Q2

REPORT INFORMATION
  Report Type: 
  Country: None (occurrence: None)
  Receive Date: 20080416
  Receipt Date: 20080404
  Transmission Date: 20081010
  Serious: Yes (Hospitalization)
  Sender: FDA-Public Use
  Company Number: TPA2008A00218

PATIENT
  Age: 68 Year
  Sex: Male
  Weight: 98.8842 kg

DRUGS (10)
  1. ACTOS [Suspect]
     Indication: TYPE 2 DIABETES MELLITUS
     Dosage: 45 MG, 1 IN 1 D, PER ORAL : 15 MG, 1 IN 1 D, PER ORAL
     Route: 048
     Dates: start: 20020918, end: 20080214
  2. ACTOS [Suspect]
     Indication: TYPE 2 DIABETES MELLITUS
     Dosage: 45 MG, 1 IN 1 D, PER ORAL : 15 MG, 1 IN 1 D, PER ORAL
     Route: 048
     Dates: start: 20080214
  3. DIOVAN [Concomitant]
  4. HYDROCHLOROTHIAZIDE [Concomitant]
  5. TARAZOSIN (ALL OTHER THERAPEUTIC PRODUCTS) [Concomitant]
  6. SYNTHROID [Concomitant]
  7. CELEBREX [Concomitant]
  8. TOPROL-XL [Concomitant]
  9. LANTUS INSULIN (INSULIN) [Concomitant]
  10. HUMALOG INSULIN (INSULIN) [Concomitant]

REACTIONS (11)
  - ABASIA [None]
  - ASTHENIA [None]
  - BACK PAIN [None]
  - BODY MASS INDEX INCREASED [None]
  - CARDIAC DISORDER [None]
  - FEELING ABNORMAL [None]
  - HYPERTENSION [None]
  - JOINT SWELLING [None]
  - MUSCULOSKELETAL PAIN [None]
  - OEDEMA PERIPHERAL [None]
  - SPINAL COLUMN STENOSIS [None]
